FAERS Safety Report 5607470-1 (Version None)
Quarter: 2008Q1

REPORT INFORMATION
  Report Type: 
  Country: None (occurrence: None)
  Receive Date: 20080130
  Receipt Date: 20080124
  Transmission Date: 20080703
  Serious: Yes (Hospitalization)
  Sender: FDA-Public Use
  Company Number: DE-RB-009107-08

PATIENT
  Age: 29 Year
  Sex: Male

DRUGS (1)
  1. SUBUTEX [Suspect]
     Route: 060
     Dates: start: 20051001

REACTIONS (2)
  - FAECALOMA [None]
  - PANCREATITIS [None]
